FAERS Safety Report 22685371 (Version 4)
Quarter: 2023Q4

REPORT INFORMATION
  Report Type: Report from Study
  Country: EG (occurrence: EG)
  Receive Date: 20230710
  Receipt Date: 20231011
  Transmission Date: 20240110
  Serious: Yes (Life-Threatening, Other)
  Sender: FDA-Public Use
  Company Number: EG-002147023-NVSC2023EG151880

PATIENT
  Age: 73 Year
  Sex: Female

DRUGS (9)
  1. AFINITOR [Suspect]
     Active Substance: EVEROLIMUS
     Indication: Breast cancer metastatic
     Dosage: 1 DOSAGE FORM, QD, (LOT NO: 10073945494039) (STRENGTH 10 MG)
     Route: 048
     Dates: start: 20230608, end: 20230620
  2. AFINITOR [Suspect]
     Active Substance: EVEROLIMUS
     Dosage: 1 DOSAGE FORM, QD (STRENGTH 5MG)
     Route: 048
  3. FEMARA [Suspect]
     Active Substance: LETROZOLE
     Indication: Breast cancer metastatic
     Dosage: 1 DOSAGE FORM, QD, (LOT NO: 10553970021190)
     Route: 048
     Dates: start: 20230608
  4. IBRANCE [Concomitant]
     Active Substance: PALBOCICLIB
     Indication: Product used for unknown indication
     Dosage: UNK
     Route: 065
  5. TAVACIN [Concomitant]
     Indication: Antibiotic therapy
     Dosage: 1 DOSAGE FORM, QD,  (5 DAY COURSE)
     Route: 065
     Dates: start: 20230624
  6. FEROGLOBIN [Concomitant]
     Indication: Haemoglobin decreased
     Dosage: 1 DOSAGE FORM, QD
     Route: 065
  7. FEROGLOBIN [Concomitant]
     Indication: Iron deficiency
  8. CLINDAMYCIN [Concomitant]
     Active Substance: CLINDAMYCIN
     Indication: Bacterial infection
     Dosage: UNK, QD, ( FOR ONE WEEK AFTER STOPPING AUGMENTIN 1GM UPON PATIENT WORDS)
     Route: 065
  9. AUGMENTIN [Concomitant]
     Active Substance: AMOXICILLIN\CLAVULANATE POTASSIUM
     Indication: Bacterial infection
     Dosage: UNK, BID, (1 AND HALF MONTHS AGO / FOR ONE WEEK)
     Route: 065

REACTIONS (17)
  - Feeling abnormal [Unknown]
  - Ear inflammation [Recovering/Resolving]
  - Decreased immune responsiveness [Recovered/Resolved]
  - Stomatitis [Recovering/Resolving]
  - Mastication disorder [Recovering/Resolving]
  - Speech disorder [Recovering/Resolving]
  - Eating disorder [Recovering/Resolving]
  - Dysphagia [Recovering/Resolving]
  - Dehydration [Recovering/Resolving]
  - Infection [Recovered/Resolved]
  - Fatigue [Recovering/Resolving]
  - Movement disorder [Recovering/Resolving]
  - Somnolence [Recovering/Resolving]
  - Vomiting [Recovering/Resolving]
  - Nausea [Not Recovered/Not Resolved]
  - Insomnia [Recovering/Resolving]
  - Tumour marker increased [Unknown]

NARRATIVE: CASE EVENT DATE: 20230601
